FAERS Safety Report 17470126 (Version 1)
Quarter: 2020Q1

REPORT INFORMATION
  Report Type: Spontaneous
  Country: US (occurrence: US)
  Receive Date: 20200227
  Receipt Date: 20200227
  Transmission Date: 20200409
  Serious: No
  Sender: FDA-Public Use
  Company Number: US-AMAG PHARMACEUTICALS, INC.-AMAG202000719

PATIENT
  Sex: Female
  Weight: 54.48 kg

DRUGS (6)
  1. AZULFIDINE [Concomitant]
     Active Substance: SULFASALAZINE
     Indication: COLITIS
     Route: 048
  2. SYNTHROID [Concomitant]
     Active Substance: LEVOTHYROXINE SODIUM
     Indication: HYPOTHYROIDISM
     Route: 048
  3. INTRAROSA [Suspect]
     Active Substance: PRASTERONE
     Indication: VULVOVAGINAL DISCOMFORT
     Route: 067
     Dates: start: 201911
  4. SINGULAIR [Concomitant]
     Active Substance: MONTELUKAST SODIUM
     Indication: HYPERSENSITIVITY
  5. ALLEGRA [Concomitant]
     Active Substance: FEXOFENADINE HYDROCHLORIDE
     Indication: HYPERSENSITIVITY
  6. INTRAROSA [Suspect]
     Active Substance: PRASTERONE
     Indication: DYSPAREUNIA

REACTIONS (3)
  - Faeces soft [Not Recovered/Not Resolved]
  - Rosacea [Not Recovered/Not Resolved]
  - Off label use [Not Recovered/Not Resolved]
